FAERS Safety Report 8878990 (Version 4)
Quarter: 2012Q4

REPORT INFORMATION
  Report Type: 
  Country: SE (occurrence: SE)
  Receive Date: 20121026
  Receipt Date: 20121224
  Transmission Date: 20130627
  Serious: Yes (Hospitalization, Other)
  Sender: FDA-Public Use
  Company Number: PHHY2012SE086202

PATIENT
  Age: 46 Year
  Sex: Male

DRUGS (7)
  1. GILENYA [Suspect]
     Dosage: 0.5 mg, UNK
     Route: 048
     Dates: start: 201201
  2. NOVANTRONE [Suspect]
     Indication: MULTIPLE SCLEROSIS
  3. VESICARE [Concomitant]
  4. EMGESAN [Concomitant]
  5. PIPERACILLIN + TAZOBACTAM [Concomitant]
     Indication: FEBRILE NEUTROPENIA
  6. TRETINOIN [Concomitant]
  7. ALVEDON [Concomitant]

REACTIONS (38)
  - Acute promyelocytic leukaemia [Unknown]
  - Contusion [Unknown]
  - Haematuria [Unknown]
  - Haemoglobin decreased [Unknown]
  - Thrombocytopenia [Unknown]
  - White blood cell count decreased [Recovering/Resolving]
  - Central nervous system lesion [Unknown]
  - Multiple sclerosis [Unknown]
  - Gait disturbance [Unknown]
  - Expanded disability status scale score increased [Unknown]
  - Movement disorder [Unknown]
  - Hemiplegia [Unknown]
  - Eye movement disorder [Unknown]
  - Aphagia [Unknown]
  - Speech disorder [Unknown]
  - Stress [Unknown]
  - Skin lesion [Unknown]
  - Lip pain [Unknown]
  - Haematochezia [Unknown]
  - Oral pain [Unknown]
  - Hypofibrinogenaemia [Unknown]
  - Bedridden [Unknown]
  - Febrile neutropenia [Unknown]
  - Haemorrhage [Unknown]
  - Catheter site haemorrhage [Unknown]
  - Joint swelling [Unknown]
  - Retinoic acid syndrome [Unknown]
  - Scab [Unknown]
  - Wound [Unknown]
  - Haematoma [Unknown]
  - Malaise [Unknown]
  - Fatigue [Unknown]
  - Decubitus ulcer [Unknown]
  - Blood creatinine increased [Unknown]
  - C-reactive protein increased [Unknown]
  - Pain in extremity [Unknown]
  - Headache [Unknown]
  - Pyrexia [Unknown]
